FAERS Safety Report 7492337-7 (Version None)
Quarter: 2011Q2

REPORT INFORMATION
  Report Type: 
  Country: None (occurrence: None)
  Receive Date: 20110519
  Receipt Date: 20110506
  Transmission Date: 20111010
  Serious: Yes (Hospitalization, Other)
  Sender: FDA-Public Use
  Company Number: US-BAYER-201022420NA

PATIENT
  Age: 39 Year
  Sex: Female

DRUGS (18)
  1. YAZ [Suspect]
     Indication: PRODUCT USED FOR UNKNOWN INDICATION
     Route: 048
     Dates: start: 20071001, end: 20080401
  2. JANUMET [Concomitant]
     Dosage: UNK UNK, BID
     Route: 048
  3. DIOVAN HCT [Concomitant]
     Dosage: 320/25MG
     Route: 048
  4. CYCLOBENZAPRINE [Concomitant]
     Dosage: 10 MG, UNK
     Route: 048
  5. LEVAQUIN [Concomitant]
     Route: 048
  6. ESTRADIOL [Concomitant]
     Dosage: 0.1 MG, UNK
     Dates: end: 20080429
  7. NABUMETONE [Concomitant]
     Dosage: 750 MG, UNK
     Route: 048
  8. TIZANIDINE HYDROCHLORIDE [Concomitant]
     Dosage: 4 MG, UNK
     Route: 048
  9. METFORMIN HCL [Concomitant]
     Dosage: 500 MG, UNK
     Route: 048
  10. LEXAPRO [Concomitant]
     Dosage: 20 MG, QD
     Route: 048
  11. PROTONIX [Concomitant]
     Dosage: 40 MG, QD
     Route: 048
  12. FLUCONAZOLE [Concomitant]
     Dosage: 150 MG, UNK
     Route: 048
  13. LYRICA [Concomitant]
     Dosage: 75 MG, UNK
     Route: 048
  14. ACETAMINOPHEN/SALICYLAMIDE/PHENYLTOLOXAMINE/CAFFEINE [Concomitant]
     Route: 048
  15. PREMARIN [Concomitant]
     Route: 048
  16. HYDROCODONE BITARTRATE AND ACETAMINOPHEN [Concomitant]
     Dosage: 5-500
     Route: 048
  17. YASMIN [Suspect]
     Indication: PRODUCT USED FOR UNKNOWN INDICATION
     Route: 048
     Dates: start: 20071001, end: 20080401
  18. SIMVASTATIN [Concomitant]
     Dosage: 10 MG, UNK
     Route: 048

REACTIONS (1)
  - PELVIC VENOUS THROMBOSIS [None]
